FAERS Safety Report 17024115 (Version 15)
Quarter: 2020Q2

REPORT INFORMATION
  Report Type: Report from Study
  Country: US (occurrence: US)
  Receive Date: 20191113
  Receipt Date: 20200520
  Transmission Date: 20200713
  Serious: Yes (Death, Life-Threatening, Hospitalization)
  Sender: FDA-Public Use
  Company Number: US-ROCHE-2465580

PATIENT
  Age: 66 Year
  Sex: Female
  Weight: 39 kg

DRUGS (30)
  1. BENDAMUSTINE [Suspect]
     Active Substance: BENDAMUSTINE
     Indication: B-CELL LYMPHOMA
     Dosage: BENDAMUSTINE 90 MG/M2 IV ON DAYS 1 AND 2 OF EACH CYCLE OVER 15 MINUTES AFTER OBINUTUZUMAB.?DATE OF L
     Route: 042
     Dates: start: 20190522
  2. PROCHLORPERAZINE. [Concomitant]
     Active Substance: PROCHLORPERAZINE
  3. IBUPROFEN. [Concomitant]
     Active Substance: IBUPROFEN
     Indication: MYALGIA
     Route: 048
     Dates: start: 20190430
  4. MARINOL [Concomitant]
     Active Substance: DRONABINOL
     Route: 048
     Dates: start: 20191120, end: 20191218
  5. DRONABINOL. [Concomitant]
     Active Substance: DRONABINOL
     Route: 048
  6. BENDAMUSTINE [Suspect]
     Active Substance: BENDAMUSTINE
     Route: 042
     Dates: start: 20190522
  7. FLINTSTONES COMPLETE [Concomitant]
     Active Substance: VITAMINS
     Route: 048
     Dates: start: 20191120
  8. VALTREX [Concomitant]
     Active Substance: VALACYCLOVIR HYDROCHLORIDE
     Route: 048
  9. METRONIDAZOLE. [Concomitant]
     Active Substance: METRONIDAZOLE
     Route: 042
  10. VENETOCLAX. [Suspect]
     Active Substance: VENETOCLAX
     Indication: B-CELL LYMPHOMA
     Dosage: DAYS 1-10?DATE OF LAST VENETOCLAX 800 MG CYCLE 6: 17/OCT/2019
     Route: 048
     Dates: start: 20190618
  11. PROCHLORPERAZINE. [Concomitant]
     Active Substance: PROCHLORPERAZINE
     Indication: NAUSEA
     Route: 048
     Dates: start: 20190518
  12. LEVOFLOXACIN. [Concomitant]
     Active Substance: LEVOFLOXACIN
     Route: 065
  13. VANCOMYCIN [Concomitant]
     Active Substance: VANCOMYCIN
  14. ALLOPURINOL. [Concomitant]
     Active Substance: ALLOPURINOL
     Indication: PROPHYLAXIS
     Route: 048
     Dates: start: 20190518
  15. ZOFRAN [Concomitant]
     Active Substance: ONDANSETRON HYDROCHLORIDE
     Indication: NAUSEA
     Route: 048
     Dates: start: 20190518
  16. ZOLOFT [Concomitant]
     Active Substance: SERTRALINE HYDROCHLORIDE
     Route: 048
  17. METHYLPREDNISOLONE SODIUM SUCCINATE. [Concomitant]
     Active Substance: METHYLPREDNISOLONE SODIUM SUCCINATE
     Route: 042
  18. ONDASETRON [ONDANSETRON] [Concomitant]
     Route: 042
  19. VANCOMYCIN [Concomitant]
     Active Substance: VANCOMYCIN
     Route: 048
  20. ZOFRAN [Concomitant]
     Active Substance: ONDANSETRON HYDROCHLORIDE
     Indication: VOMITING
  21. ACETAMINOPHEN. [Concomitant]
     Active Substance: ACETAMINOPHEN
     Route: 048
     Dates: start: 20191218
  22. PANTOPRAZOLE [Concomitant]
     Active Substance: PANTOPRAZOLE
     Route: 050
  23. ZOLOFT [Concomitant]
     Active Substance: SERTRALINE HYDROCHLORIDE
     Route: 048
  24. PROCHLORPERAZINE. [Concomitant]
     Active Substance: PROCHLORPERAZINE
     Indication: VOMITING
  25. OBINUTUZUMAB. [Suspect]
     Active Substance: OBINUTUZUMAB
     Indication: B-CELL LYMPHOMA
     Dosage: OBINUTUZUMAB IV. CYCLE 1, DAY 1 OBINUTUZUMAB 100 MG AND CYCLE 1, DAY 2 OBINUTUZUMAB 900 MG FOR TOTAL
     Route: 042
     Dates: start: 20190522
  26. BACTRIM DS [Concomitant]
     Active Substance: SULFAMETHOXAZOLE\TRIMETHOPRIM
     Dosage: 1 TABLET ORALLY
     Route: 048
  27. PROCHLORPERAZINE. [Concomitant]
     Active Substance: PROCHLORPERAZINE
     Route: 065
  28. VALACYCLOVIR [Concomitant]
     Active Substance: VALACYCLOVIR HYDROCHLORIDE
     Route: 048
  29. NAPROSYN [Concomitant]
     Active Substance: NAPROXEN
     Dosage: AS NEEDED
     Route: 048
     Dates: start: 20191120
  30. METOPROLOL. [Concomitant]
     Active Substance: METOPROLOL
     Route: 048

REACTIONS (18)
  - Nausea [Recovered/Resolved]
  - Hyponatraemia [Recovered/Resolved]
  - Encephalitis cytomegalovirus [Fatal]
  - Cardiac arrest [Unknown]
  - Fungal infection [Unknown]
  - Multiple organ dysfunction syndrome [Unknown]
  - Pneumocystis jirovecii pneumonia [Unknown]
  - Liver function test increased [Unknown]
  - Pancytopenia [Unknown]
  - Dehydration [Recovered/Resolved]
  - Sepsis [Unknown]
  - Enterocolitis infectious [Recovered/Resolved]
  - Decreased appetite [Recovered/Resolved]
  - Respiratory failure [Unknown]
  - Herpes simplex reactivation [Recovered/Resolved]
  - Encephalopathy [Unknown]
  - Pneumonia [Unknown]
  - Sinus bradycardia [Unknown]

NARRATIVE: CASE EVENT DATE: 20191022
